FAERS Safety Report 8164559-3 (Version None)
Quarter: 2012Q1

REPORT INFORMATION
  Report Type: 
  Country: None (occurrence: None)
  Receive Date: 20120226
  Receipt Date: 20120215
  Transmission Date: 20120608
  Serious: Yes (Hospitalization)
  Sender: FDA-Public Use
  Company Number: FR-BRISTOL-MYERS SQUIBB COMPANY-16374837

PATIENT
  Age: 70 Year
  Sex: Female

DRUGS (5)
  1. ACETAMINOPHEN AND CODEINE PHOSPHATE [Suspect]
  2. METFORMIN HCL [Suspect]
  3. VALSARTAN [Suspect]
  4. YERVOY [Suspect]
     Indication: MALIGNANT MELANOMA
     Dosage: 1 DF = TOTAL 4 INF:2ND :25OCT11, 3RD:15NOV11 AND LAST:06DEC11 STRENGTH:3MG/KG
     Dates: start: 20111004, end: 20111206
  5. PLAVIX [Suspect]
     Dosage: 1 DF:75 UNIT NOS

REACTIONS (1)
  - RENAL FAILURE [None]
